FAERS Safety Report 14577631 (Version 2)
Quarter: 2018Q2

REPORT INFORMATION
  Report Type: Spontaneous
  Country: GB (occurrence: GB)
  Receive Date: 20180227
  Receipt Date: 20180516
  Transmission Date: 20180711
  Serious: Yes (Hospitalization)
  Sender: FDA-Public Use
  Company Number: GB-BAUSCH-BL-2018-005222

PATIENT
  Age: 75 Year
  Sex: Male
  Weight: 86 kg

DRUGS (6)
  1. AMIODARONE [Concomitant]
     Active Substance: AMIODARONE
     Dosage: 600MG ONCE A DAY; 200MG THREE TIMES DAY. AS PER USUAL ORAL LOADING DOSE.
     Route: 048
  2. COLECALCIFEROL [Concomitant]
     Active Substance: CHOLECALCIFEROL
     Indication: PRODUCT USED FOR UNKNOWN INDICATION
     Dosage: 20,000 UNITS INSTEAD OF 40,000
  3. METFORMIN HYDROCHLORIDE. [Suspect]
     Active Substance: METFORMIN HYDROCHLORIDE
     Indication: TYPE 2 DIABETES MELLITUS
     Dosage: RECENTLY REDUCED TO OD BEFORE DISCONTINUATION
     Route: 048
     Dates: end: 20171101
  4. METFORMIN [Concomitant]
     Active Substance: METFORMIN HYDROCHLORIDE
     Indication: PRODUCT USED FOR UNKNOWN INDICATION
     Dosage: RECENTLY REDUCED FROM TWICE A DAY. WITHHELD DURING ADMISSION
  5. SIMVASTATIN. [Concomitant]
     Active Substance: SIMVASTATIN
     Indication: PRODUCT USED FOR UNKNOWN INDICATION
     Dosage: AT NIGHT. WITHHELD DURING ADMISSION
  6. AMIODARONE [Concomitant]
     Active Substance: AMIODARONE
     Indication: PRODUCT USED FOR UNKNOWN INDICATION
     Dosage: 600MG ONCE A DAY; 200MG THREE TIMES DAY. AS PER USUAL ORAL LOADING DOSE.
     Route: 048

REACTIONS (6)
  - Acute kidney injury [Recovering/Resolving]
  - Electrolyte imbalance [Unknown]
  - Malaise [Recovered/Resolved]
  - Urosepsis [Unknown]
  - Rhabdomyolysis [Unknown]
  - Diarrhoea [Recovered/Resolved]

NARRATIVE: CASE EVENT DATE: 201710
